FAERS Safety Report 8222230 (Version 7)
Quarter: 2012Q4

REPORT INFORMATION
  Report Type: 
  Country: JP (occurrence: JP)
  Receive Date: 20111102
  Receipt Date: 20121127
  Transmission Date: 20130627
  Serious: Yes (Death, Life-Threatening, Hospitalization, Other)
  Sender: FDA-Public Use
  Company Number: JP-PFIZER INC-2011266042

PATIENT
  Age: 71 Year
  Sex: Female
  Weight: 45 kg

DRUGS (9)
  1. CELECOX [Suspect]
     Indication: LUMBAGO
     Dosage: 100 mg, UNK
     Route: 048
     Dates: start: 20110726, end: 20110810
  2. IRSOGLADINE MALEATE [Suspect]
     Dosage: UNK
     Route: 048
     Dates: start: 20110726, end: 20110810
  3. LIPITOR [Concomitant]
     Indication: HYPERLIPIDAEMIA
     Dosage: 10 mg, UNK
     Dates: start: 1993, end: 20110810
  4. NORVASC [Concomitant]
     Indication: HYPERTENSION
     Dosage: UNK
     Route: 048
     Dates: start: 1993, end: 20110810
  5. CELTECT [Concomitant]
     Dosage: UNK
     Route: 048
     Dates: start: 1993, end: 20110810
  6. GLYCYRON [Concomitant]
     Dosage: UNK
     Route: 048
     Dates: start: 1993, end: 20110810
  7. CELESTAMINE [Concomitant]
     Dosage: UNK
     Dates: start: 1993, end: 20110810
  8. CINAL [Concomitant]
     Dosage: UNK
     Route: 048
     Dates: end: 20110810
  9. ASCOMP [Concomitant]
     Dosage: UNK
     Route: 048
     Dates: end: 20110810

REACTIONS (13)
  - Pancreatitis acute [Fatal]
  - Pneumonia aspiration [Fatal]
  - Toxic epidermal necrolysis [Not Recovered/Not Resolved]
  - Respiratory failure [Unknown]
  - Disseminated intravascular coagulation [Unknown]
  - Sepsis [Unknown]
  - Blood pressure decreased [Unknown]
  - Abscess [Unknown]
  - Gastrointestinal haemorrhage [Unknown]
  - Renal failure acute [Unknown]
  - Renal disorder [Unknown]
  - Liver disorder [Unknown]
  - Acute prerenal failure [Unknown]
